FAERS Safety Report 17204408 (Version 1)
Quarter: 2019Q4

REPORT INFORMATION
  Report Type: Spontaneous
  Country: US (occurrence: US)
  Receive Date: 20191226
  Receipt Date: 20191226
  Transmission Date: 20200122
  Serious: Yes (Death, Hospitalization, Other)
  Sender: FDA-Public Use
  Company Number: US-PFIZER INC-2019552693

PATIENT
  Age: 87 Year
  Sex: Male
  Weight: 61.23 kg

DRUGS (1)
  1. GABAPENTIN. [Suspect]
     Active Substance: GABAPENTIN
     Indication: NERVE COMPRESSION
     Dosage: 300 MG, ONCE A DAY

REACTIONS (10)
  - Thinking abnormal [Recovered/Resolved]
  - Heart rate increased [Recovered/Resolved]
  - Death [Fatal]
  - Blood pressure decreased [Recovered/Resolved]
  - Myocardial infarction [Unknown]
  - Malaise [Recovered/Resolved]
  - Blister [Unknown]
  - Off label use [Unknown]
  - Gangrene [Unknown]
  - Product use in unapproved indication [Unknown]

NARRATIVE: CASE EVENT DATE: 2018
